FAERS Safety Report 4376933-1 (Version None)
Quarter: 2004Q2

REPORT INFORMATION
  Report Type: 
  Country: None (occurrence: None)
  Receive Date: 20040608
  Receipt Date: 20040528
  Transmission Date: 20050107
  Serious: Yes (Hospitalization)
  Sender: FDA-Public Use
  Company Number: 30020075-NA01-1

PATIENT
  Age: 53 Year
  Sex: Male

DRUGS (7)
  1. DIANEAL PD-2 W/ DEXTROSE 1.5% [Suspect]
     Indication: PERITONEAL DIALYSIS
     Dosage: 2 LITERS QD, INTRAPERITONEAL (IP)
     Route: 033
     Dates: start: 20031225, end: 20040216
  2. 5B0000 - PHYSIONEAL 35 HIGH CALCIUM [Suspect]
     Indication: PERITONEAL DIALYSIS
     Dosage: IP
     Route: 033
     Dates: start: 20031225, end: 20040216
  3. REBAMEPIDE [Concomitant]
  4. LISINOPRIL [Concomitant]
  5. AMLODIPINE [Concomitant]
  6. ALFACALCIDOL [Concomitant]
  7. CA CARBONATE [Concomitant]

REACTIONS (3)
  - ANAEMIA [None]
  - AZOTAEMIA [None]
  - CONDITION AGGRAVATED [None]
